FAERS Safety Report 18585901 (Version 1)
Quarter: 2020Q4

REPORT INFORMATION
  Report Type: Spontaneous
  Country: US (occurrence: US)
  Receive Date: 20201206
  Receipt Date: 20201206
  Transmission Date: 20210114
  Serious: Yes (Disabling)
  Sender: FDA-Public Use
  Company Number: None

PATIENT
  Age: 72 Year
  Sex: Female
  Weight: 123.75 kg

DRUGS (7)
  1. DMANNOSE [Concomitant]
  2. ESTROGEN CREAM [Concomitant]
  3. PROTONIX [Concomitant]
     Active Substance: PANTOPRAZOLE SODIUM
  4. CARDIZEM [Concomitant]
     Active Substance: DILTIAZEM HYDROCHLORIDE
  5. PROLIA [Suspect]
     Active Substance: DENOSUMAB
     Indication: OSTEOPOROSIS
  6. CRANBERRY. [Concomitant]
     Active Substance: CRANBERRY
  7. IMTREX [Concomitant]

REACTIONS (4)
  - Hypertension [None]
  - Asthenia [None]
  - Feeling abnormal [None]
  - Urinary tract infection [None]

NARRATIVE: CASE EVENT DATE: 20201001
